FAERS Safety Report 4672446-8 (Version None)
Quarter: 2005Q2

REPORT INFORMATION
  Report Type: 
  Country: None (occurrence: None)
  Receive Date: 20050520
  Receipt Date: 20050520
  Transmission Date: 20051028
  Serious: Yes (Other)
  Sender: FDA-Public Use
  Company Number: None

PATIENT
  Age: 84 Year
  Sex: Male
  Weight: 59 kg

DRUGS (1)
  1. TRAVOPROST [Suspect]
     Indication: GLAUCOMA
     Dosage: 0.00430-1 DROP QHS
     Dates: start: 20041001, end: 20050301

REACTIONS (3)
  - INSTILLATION SITE REACTION [None]
  - IRITIS [None]
  - MACULAR OEDEMA [None]
